FAERS Safety Report 4958559-1 (Version None)
Quarter: 2006Q1

REPORT INFORMATION
  Report Type: 
  Country: None (occurrence: None)
  Receive Date: 20060330
  Receipt Date: 20060323
  Transmission Date: 20060701
  Serious: Yes (Hospitalization)
  Sender: FDA-Public Use
  Company Number: PT-ABBOTT-06P-130-0329050-00

PATIENT
  Sex: Female

DRUGS (3)
  1. KLACID OD [Suspect]
     Indication: PHARYNGITIS
     Route: 048
  2. ACETYLSALICYLATE LYSINE [Concomitant]
     Indication: PHARYNGITIS
  3. NSAID'S [Concomitant]
     Indication: PHARYNGITIS

REACTIONS (2)
  - CHOLECYSTITIS [None]
  - OVERDOSE [None]
